FAERS Safety Report 18345898 (Version 2)
Quarter: 2020Q4

REPORT INFORMATION
  Report Type: Spontaneous
  Country: US (occurrence: US)
  Receive Date: 20201005
  Receipt Date: 20201021
  Transmission Date: 20210114
  Serious: Yes (Hospitalization, Disabling, Other)
  Sender: FDA-Public Use
  Company Number: US-PURDUE-USA-2020-0168465

PATIENT
  Age: 45 Year
  Sex: Male

DRUGS (12)
  1. HYDROMORPHONE TABLETS [Suspect]
     Active Substance: HYDROMORPHONE
     Indication: PRODUCT USED FOR UNKNOWN INDICATION
     Route: 048
  2. MORPHINE SULFATE EXTENDED-RELEASE TABLETS (RHODES 74-769, 74-862) [Suspect]
     Active Substance: MORPHINE SULFATE
     Indication: PRODUCT USED FOR UNKNOWN INDICATION
     Route: 048
  3. ALPRAZOLAM. [Suspect]
     Active Substance: ALPRAZOLAM
     Indication: PRODUCT USED FOR UNKNOWN INDICATION
     Dosage: .25 MG, BID PRN
     Route: 048
  4. TRAMADOL. [Suspect]
     Active Substance: TRAMADOL
     Indication: PRODUCT USED FOR UNKNOWN INDICATION
     Route: 048
  5. SOMA [Suspect]
     Active Substance: CARISOPRODOL
     Indication: PRODUCT USED FOR UNKNOWN INDICATION
     Dosage: 350 MG, QID PRN
     Route: 048
  6. BUPROPION HCL [Suspect]
     Active Substance: BUPROPION HYDROCHLORIDE
     Indication: PRODUCT USED FOR UNKNOWN INDICATION
     Dosage: 200 MG, BID
     Route: 065
  7. OXYCODONE HCL CR TABLETS (SIMILAR TO NDA 22-272) [Suspect]
     Active Substance: OXYCODONE HYDROCHLORIDE
     Dosage: 30 MG, Q6H PRN
     Route: 048
  8. OXYCODONE/ ACETAMINOPHEN TABLETS [Suspect]
     Active Substance: ACETAMINOPHEN\OXYCODONE HYDROCHLORIDE
     Indication: PRODUCT USED FOR UNKNOWN INDICATION
     Route: 048
  9. MS CONTIN [Suspect]
     Active Substance: MORPHINE SULFATE
     Indication: PRODUCT USED FOR UNKNOWN INDICATION
     Dosage: 100 MG, BID
     Route: 048
  10. OXYCODONE HCL TABLETS (91-490) [Suspect]
     Active Substance: OXYCODONE HYDROCHLORIDE
     Indication: PRODUCT USED FOR UNKNOWN INDICATION
     Route: 048
  11. OXYCODONE HCL CR TABLETS (SIMILAR TO NDA 22-272) [Suspect]
     Active Substance: OXYCODONE HYDROCHLORIDE
     Indication: PRODUCT USED FOR UNKNOWN INDICATION
     Dosage: 15 MG, TID PRN
     Route: 048
  12. ALPRAZOLAM. [Suspect]
     Active Substance: ALPRAZOLAM
     Dosage: .25 MG, BID PRN
     Route: 048

REACTIONS (19)
  - Drug dependence [Unknown]
  - Lower limb fracture [Recovered/Resolved with Sequelae]
  - Memory impairment [Unknown]
  - Rib fracture [Unknown]
  - Head injury [Unknown]
  - Headache [Unknown]
  - Blindness [Unknown]
  - Learning disability [Unknown]
  - Suicidal ideation [Unknown]
  - Withdrawal syndrome [Unknown]
  - Skin laceration [Unknown]
  - Sleep talking [Unknown]
  - Upper limb fracture [Recovered/Resolved with Sequelae]
  - Depression [Unknown]
  - Suicide attempt [Unknown]
  - Insomnia [Unknown]
  - Back pain [Not Recovered/Not Resolved]
  - Road traffic accident [Unknown]
  - Anxiety [Unknown]

NARRATIVE: CASE EVENT DATE: 20171009
